FAERS Safety Report 6378031-4 (Version None)
Quarter: 2009Q3

REPORT INFORMATION
  Report Type: 
  Country: None (occurrence: None)
  Receive Date: 20090921
  Receipt Date: 20090909
  Transmission Date: 20100115
  Serious: Yes (Life-Threatening, Hospitalization)
  Sender: FDA-Public Use
  Company Number: 2009MB000061

PATIENT
  Age: 46 Year
  Sex: Male

DRUGS (8)
  1. CEPHALEXIN [Suspect]
     Indication: SUICIDE ATTEMPT
     Dosage: 14 DF; X1; PO
     Route: 048
  2. DIPHENHYDRAMINE HCL [Suspect]
     Indication: SUICIDE ATTEMPT
     Dosage: 30 DF; X1; PO
     Route: 048
  3. HALOPERIDOL [Suspect]
     Indication: SUICIDE ATTEMPT
     Dosage: 30 DF; X1; PO
     Route: 048
  4. DOLOGESIC /00758701/ (PROPACET) [Suspect]
     Indication: SUICIDE ATTEMPT
     Dosage: 20 DF; X1; PO
     Route: 048
  5. CYCLOBENZAPRINE [Suspect]
     Indication: SUICIDE ATTEMPT
     Dosage: 20 DF; X1; PO
     Route: 048
  6. NAPROXEN [Suspect]
     Indication: SUICIDE ATTEMPT
     Dosage: 20 DF; X1; PO
     Route: 048
  7. CHLORZOXAZONE [Suspect]
     Indication: SUICIDE ATTEMPT
     Dosage: 48 DF; X1; PO
     Route: 048
  8. ALCOHOL (ETHANOL) [Suspect]
     Indication: DRUG USE FOR UNKNOWN INDICATION
     Dosage: 48 DF; X1; PO
     Route: 048

REACTIONS (5)
  - ALCOHOL USE [None]
  - METHAEMOGLOBINAEMIA [None]
  - MULTIPLE DRUG OVERDOSE INTENTIONAL [None]
  - SUICIDE ATTEMPT [None]
  - TACHYCARDIA [None]
